FAERS Safety Report 8078984-2 (Version None)
Quarter: 2012Q1

REPORT INFORMATION
  Report Type: 
  Country: None (occurrence: None)
  Receive Date: 20120128
  Receipt Date: 20110621
  Transmission Date: 20120608
  Serious: No
  Sender: FDA-Public Use
  Company Number: US-ABBOTT-11P-163-0734236-00

PATIENT
  Age: 55 Year
  Sex: Female

DRUGS (18)
  1. PREVACID [Concomitant]
     Indication: GASTROOESOPHAGEAL REFLUX DISEASE
     Dosage: DAILY
  2. ZANTAC [Concomitant]
     Indication: GASTROOESOPHAGEAL REFLUX DISEASE
  3. SONATA [Concomitant]
     Indication: INSOMNIA
     Dosage: AT BEDTIME
  4. FLEXERIL [Concomitant]
     Indication: INSOMNIA
     Dosage: AT BEDTIME
  5. PERCOCET [Concomitant]
     Indication: PAIN
  6. COLACE [Concomitant]
     Indication: CONSTIPATION PROPHYLAXIS
     Dosage: DAILY
  7. VOLTAREN [Concomitant]
     Indication: ARTHRALGIA
     Dosage: GEL, PRN
  8. HUMIRA [Suspect]
     Indication: RHEUMATOID ARTHRITIS
     Dates: start: 20110210, end: 20110602
  9. ARAVA [Concomitant]
     Indication: PRODUCT USED FOR UNKNOWN INDICATION
     Dosage: DAILY
  10. CYMBALTA [Concomitant]
     Indication: FIBROMYALGIA
     Dosage: DAILY
  11. CELEXA [Concomitant]
     Indication: FIBROMYALGIA
     Dosage: DAILY
  12. MULTI-VITAMIN [Concomitant]
     Indication: PRODUCT USED FOR UNKNOWN INDICATION
     Dosage: DAILY
  13. BONIVA [Concomitant]
     Indication: OSTEOARTHRITIS
     Route: 042
  14. XANAX [Concomitant]
     Indication: ANXIETY
  15. VITAMIN B-12 [Concomitant]
     Indication: NEUROPATHY PERIPHERAL
     Dosage: DAILY
  16. CALCIUM+VIT D [Concomitant]
     Indication: PRODUCT USED FOR UNKNOWN INDICATION
  17. GABAPENTIN [Concomitant]
     Indication: NEUROPATHY PERIPHERAL
     Dosage: AT NIGHT
  18. FENTANYL [Concomitant]
     Indication: PRODUCT USED FOR UNKNOWN INDICATION
     Dosage: PATCH, 72 HOURS

REACTIONS (4)
  - CARPAL TUNNEL SYNDROME [None]
  - ASTHENIA [None]
  - HYPERSOMNIA [None]
  - FATIGUE [None]
